FAERS Safety Report 4457024-8 (Version None)
Quarter: 2004Q3

REPORT INFORMATION
  Report Type: 
  Country: None (occurrence: None)
  Receive Date: 20040923
  Receipt Date: 20040910
  Transmission Date: 20050211
  Serious: Yes (Life-Threatening)
  Sender: FDA-Public Use
  Company Number: FRPFM-E-20040105

PATIENT
  Age: 36 Year
  Sex: Female

DRUGS (4)
  1. AMOXICILLIN AND CLAVULANATE POTASSIUM [Suspect]
     Indication: SINUSITIS
     Dosage: 1000MG PER DAY
     Route: 048
     Dates: start: 20040529, end: 20040529
  2. ACETYLCYSTEINE [Suspect]
     Indication: SINUSITIS
     Route: 048
     Dates: start: 20040529, end: 20040529
  3. TIAPROFENIC ACID [Suspect]
     Indication: SINUSITIS
     Route: 048
     Dates: start: 20040529, end: 20040529
  4. ADRENALINE [Suspect]

REACTIONS (10)
  - ANAPHYLACTIC SHOCK [None]
  - BLOOD PRESSURE SYSTOLIC DECREASED [None]
  - CHEST PAIN [None]
  - COUGH [None]
  - DYSPHONIA [None]
  - PRURITUS [None]
  - SENSE OF OPPRESSION [None]
  - SWELLING FACE [None]
  - URTICARIA [None]
  - VISUAL DISTURBANCE [None]
